FAERS Safety Report 8916475 (Version 1)
Quarter: 2012Q4

REPORT INFORMATION
  Report Type: 
  Country: US (occurrence: US)
  Receive Date: 20121120
  Receipt Date: 20121120
  Transmission Date: 20130627
  Serious: No
  Sender: FDA-Public Use
  Company Number: US-ASTRAZENECA-2012SE85303

PATIENT
  Age: 58 Year
  Sex: Female
  Weight: 65.3 kg

DRUGS (6)
  1. PULMICORT RESPULES [Suspect]
     Indication: EOSINOPHILIC OESOPHAGITIS
     Route: 055
     Dates: start: 20121106, end: 20121107
  2. NEXIUM [Suspect]
     Indication: EOSINOPHILIC OESOPHAGITIS
     Route: 048
  3. ZYFLO CR [Concomitant]
  4. ZANTAC [Concomitant]
  5. BENEDRYL [Concomitant]
  6. GUAIFENESIN [Concomitant]

REACTIONS (5)
  - Anxiety [Not Recovered/Not Resolved]
  - Insomnia [Not Recovered/Not Resolved]
  - Intentional drug misuse [Unknown]
  - Off label use [Unknown]
  - Therapeutic response unexpected [Unknown]
